FAERS Safety Report 17755809 (Version 2)
Quarter: 2020Q3

REPORT INFORMATION
  Report Type: Spontaneous
  Country: DE (occurrence: DE)
  Receive Date: 20200507
  Receipt Date: 20200701
  Transmission Date: 20201102
  Serious: Yes (Hospitalization, Other)
  Sender: FDA-Public Use
  Company Number: NVSC2020DE121212

PATIENT
  Age: 81 Year
  Sex: Female

DRUGS (3)
  1. DEXAMETHASONE. [Suspect]
     Active Substance: DEXAMETHASONE
     Indication: PLASMA CELL MYELOMA
     Dosage: 20 MG, QD (LAST DOSE OF ADMINISTRAION WAS ON 19 SEP 2020)
     Route: 048
     Dates: start: 20190830
  2. REVLIMID [Suspect]
     Active Substance: LENALIDOMIDE
     Indication: PLASMA CELL MYELOMA
     Dosage: 10 MG, QD (LAST DOSE OF ADMINISTRATION:19 SEP 2019)
     Route: 048
     Dates: start: 20190830
  3. VELCADE [Suspect]
     Active Substance: BORTEZOMIB
     Indication: PLASMA CELL MYELOMA
     Dosage: 3.5 MG, QW (LAST DOSE OF ADMINISTRATION WAS ON 20 SEP 2020)
     Route: 058
     Dates: start: 20190830

REACTIONS (3)
  - Oesophagitis ulcerative [Recovered/Resolved]
  - Transient ischaemic attack [Recovered/Resolved]
  - Drug eruption [Recovered/Resolved]

NARRATIVE: CASE EVENT DATE: 20190925
